FAERS Safety Report 21926593 (Version 1)
Quarter: 2023Q1

REPORT INFORMATION
  Report Type: Spontaneous
  Country: US (occurrence: None)
  Receive Date: 20230127
  Receipt Date: 20230127
  Transmission Date: 20230418
  Serious: Yes (Disabling)
  Sender: FDA-Public Use
  Company Number: None

PATIENT
  Age: 33 Year
  Sex: Male
  Weight: 83.25 kg

DRUGS (8)
  1. SUBOXONE [Suspect]
     Active Substance: BUPRENORPHINE HYDROCHLORIDE\NALOXONE HYDROCHLORIDE
     Indication: Substance use disorder
     Dosage: OTHER QUANTITY : .5 .5;?FREQUENCY : DAILY;?
     Route: 048
  2. Probiotic Supplement-gummies [Concomitant]
  3. men^s Argin max [Concomitant]
  4. areds 2 formula [Concomitant]
  5. BIOTIN [Concomitant]
     Active Substance: BIOTIN
  6. melatonin 3mg [Concomitant]
  7. turmeric curcumin + ginger -gummies [Concomitant]
  8. fish oil 2400 mg [Concomitant]

REACTIONS (2)
  - Migraine [None]
  - Adverse drug reaction [None]

NARRATIVE: CASE EVENT DATE: 20230125
